FAERS Safety Report 7608372-1 (Version None)
Quarter: 2011Q3

REPORT INFORMATION
  Report Type: 
  Country: None (occurrence: None)
  Receive Date: 20110714
  Receipt Date: 20110628
  Transmission Date: 20111222
  Serious: No
  Sender: FDA-Public Use
  Company Number: US-TYCO HEALTHCARE/MALLINCKRODT-T201101091

PATIENT
  Sex: Male

DRUGS (8)
  1. ALLOPURINOL [Concomitant]
     Dosage: 100 MG, QD
  2. ATENOLOL [Concomitant]
     Dosage: 50 MG, QD
  3. OPANA ER [Suspect]
     Indication: BACK PAIN
     Dosage: 30 MG Q 12 HOURS
     Route: 048
     Dates: start: 20110531, end: 20110609
  4. ASPIRIN [Concomitant]
     Dosage: 81 MG, QD
  5. NORVASC [Concomitant]
     Dosage: 10 MG, QD
  6. MORPHINE [Suspect]
     Dosage: UNK
     Dates: start: 20110606
  7. MORPHINE [Suspect]
     Indication: BACK PAIN
     Dosage: 60 MG, BID
     Dates: start: 20100801, end: 20110531
  8. PERCOCET [Concomitant]
     Indication: BREAKTHROUGH PAIN
     Dosage: 10/325 MG, TID, PRN
     Route: 048
     Dates: start: 20110401

REACTIONS (2)
  - RASH PRURITIC [None]
  - EPHELIDES [None]
